FAERS Safety Report 10616332 (Version 4)
Quarter: 2015Q1

REPORT INFORMATION
  Report Type: Spontaneous
  Country: JP (occurrence: JP)
  Receive Date: 20141201
  Receipt Date: 20150323
  Transmission Date: 20150720
  Serious: Yes (Other)
  Sender: FDA-Public Use
  Company Number: JP-PFIZER INC-2014325323

PATIENT
  Age: 40 Year
  Sex: Female

DRUGS (4)
  1. REBAMIPIDE [Concomitant]
     Active Substance: REBAMIPIDE
     Route: 048
  2. OXYCONTIN [Concomitant]
     Active Substance: OXYCODONE HYDROCHLORIDE
     Route: 048
  3. LYRICA [Suspect]
     Active Substance: PREGABALIN
     Dosage: UNK
     Route: 048
     Dates: end: 201411
  4. PANTOSIN [Concomitant]
     Active Substance: PANTETHINE
     Route: 048

REACTIONS (4)
  - Pain in extremity [Recovered/Resolved]
  - Skin discolouration [Unknown]
  - Condition aggravated [Unknown]
  - Rheumatoid arthritis [Unknown]
